FAERS Safety Report 14375309 (Version 1)
Quarter: 2018Q1

REPORT INFORMATION
  Report Type: Spontaneous
  Country: US (occurrence: US)
  Receive Date: 20180110
  Receipt Date: 20180110
  Transmission Date: 20180509
  Serious: Yes (Hospitalization)
  Sender: FDA-Public Use
  Company Number: None

PATIENT
  Age: 55 Year
  Sex: Female

DRUGS (3)
  1. FAMOTIDINE. [Concomitant]
     Active Substance: FAMOTIDINE
  2. PROBIOTIC [Concomitant]
     Active Substance: PROBIOTICS NOS
  3. CAPECITABINE. [Suspect]
     Active Substance: CAPECITABINE
     Indication: BREAST CANCER
     Route: 048
     Dates: start: 20171116

REACTIONS (4)
  - Vomiting [None]
  - Loss of consciousness [None]
  - Rash [None]
  - Blood sodium decreased [None]

NARRATIVE: CASE EVENT DATE: 20171209
